FAERS Safety Report 19354372 (Version 1)
Quarter: 2021Q2

REPORT INFORMATION
  Report Type: Spontaneous
  Country: CN (occurrence: CN)
  Receive Date: 20210602
  Receipt Date: 20210602
  Transmission Date: 20210717
  Serious: Yes (Life-Threatening, Other)
  Sender: FDA-Public Use
  Company Number: CN-JNJFOC-20210600760

PATIENT
  Age: 67 Year
  Sex: Male
  Weight: 40 kg

DRUGS (1)
  1. XARELTO [Suspect]
     Active Substance: RIVAROXABAN
     Indication: ANTICOAGULANT THERAPY
     Dosage: 15 MG, BID
     Route: 048
     Dates: start: 20210521, end: 20210526

REACTIONS (6)
  - Pallor [Unknown]
  - Gastrointestinal haemorrhage [Unknown]
  - Haematochezia [Unknown]
  - Respiratory rate increased [Unknown]
  - Heart rate increased [Unknown]
  - Fatigue [Unknown]

NARRATIVE: CASE EVENT DATE: 20210526
